FAERS Safety Report 9780020 (Version 1)
Quarter: 2013Q4

REPORT INFORMATION
  Report Type: Spontaneous
  Country: CH (occurrence: CH)
  Receive Date: 20131223
  Receipt Date: 20131223
  Transmission Date: 20140711
  Serious: Yes (Hospitalization)
  Sender: FDA-Public Use
  Company Number: CH-GLAXOSMITHKLINE-B0955258A

PATIENT
  Age: 54 Year
  Sex: Male

DRUGS (23)
  1. VALTREX [Suspect]
     Indication: PROPHYLAXIS
     Dosage: 500MG TWICE PER DAY
     Route: 048
     Dates: start: 20131121
  2. BUSULFAN [Suspect]
     Indication: PROPHYLAXIS
     Dosage: 64MG FOUR TIMES PER DAY
     Route: 042
     Dates: start: 20131128, end: 20131201
  3. ANTITHYMOCYTE IMMUNOGLOBULIN [Suspect]
     Indication: PROPHYLAXIS
     Dosage: 1600MG PER DAY
     Route: 042
     Dates: start: 20131129, end: 20131201
  4. ENDOXAN [Suspect]
     Indication: PROPHYLAXIS
     Dosage: 4800MG PER DAY
     Route: 042
     Dates: start: 20131126, end: 20131127
  5. SOLU-MEDROL [Suspect]
     Indication: PROPHYLAXIS
     Dosage: 80MG PER DAY
     Route: 042
     Dates: start: 20131129, end: 20131201
  6. AMIKIN [Suspect]
     Indication: PRODUCT USED FOR UNKNOWN INDICATION
     Dosage: 1G PER DAY
     Route: 042
     Dates: start: 20131128, end: 20131130
  7. NOPIL FORTE [Suspect]
     Indication: PROPHYLAXIS
     Dosage: 1UNIT THREE TIMES PER WEEK
     Route: 048
     Dates: start: 20131122
  8. CEFEPIM [Suspect]
     Indication: BACTERIAL INFECTION
     Dosage: 2G THREE TIMES PER DAY
     Route: 042
     Dates: start: 20131128, end: 20131205
  9. DIFLUCAN [Suspect]
     Indication: PROPHYLAXIS
     Dosage: 400MG WEEKLY
     Route: 048
     Dates: start: 20131121
  10. LASIX [Suspect]
     Indication: DIURETIC THERAPY
     Dosage: 1UNIT AS REQUIRED
     Route: 042
     Dates: start: 20131126
  11. PANTOZOL [Suspect]
     Indication: PROPHYLAXIS
     Dosage: 40MG PER DAY
     Route: 048
     Dates: start: 20131122
  12. ZYLORIC [Suspect]
     Indication: GOUT
     Dosage: 300MG PER DAY
     Route: 048
     Dates: start: 20131121, end: 20131203
  13. ALOXI [Suspect]
     Indication: NAUSEA
     Dosage: .25MG PER DAY
     Route: 042
     Dates: start: 20131126, end: 20131126
  14. UROMITEXAN [Suspect]
     Indication: PROPHYLAXIS
     Dosage: 1UNIT AS REQUIRED
     Route: 042
     Dates: start: 20131126, end: 20131128
  15. EMEND [Suspect]
     Indication: NAUSEA
     Dosage: 80MG PER DAY
     Route: 042
     Dates: start: 20131126, end: 20131203
  16. SANDIMMUN [Concomitant]
     Indication: PROPHYLAXIS
     Dosage: 300MG PER DAY
     Route: 042
     Dates: start: 20131201, end: 20131205
  17. SOLU CORTEF [Concomitant]
     Route: 065
     Dates: start: 20131204, end: 20131204
  18. FORTECORTIN [Concomitant]
     Dates: start: 20131126, end: 20131129
  19. TAVEGYL [Concomitant]
     Dates: start: 20131129, end: 20131201
  20. PASPERTIN [Concomitant]
     Dates: start: 20131127, end: 20131127
  21. HEPARIN [Concomitant]
     Dates: start: 20131126
  22. URSOFALK [Concomitant]
     Dates: start: 20131126
  23. TAZOBAC [Concomitant]
     Dates: start: 20131205, end: 20131206

REACTIONS (4)
  - Jaundice [Recovering/Resolving]
  - Haemolysis [Unknown]
  - Hyperbilirubinaemia [Recovering/Resolving]
  - Hepatic enzyme increased [Recovering/Resolving]
